FAERS Safety Report 14747676 (Version 1)
Quarter: 2018Q2

REPORT INFORMATION
  Report Type: Spontaneous
  Country: CA (occurrence: CA)
  Receive Date: 20180411
  Receipt Date: 20180411
  Transmission Date: 20180711
  Serious: Yes (Other)
  Sender: FDA-Public Use
  Company Number: CA-PFIZER INC-2018145747

PATIENT
  Age: 56 Year
  Sex: Male

DRUGS (1)
  1. METHOTREXATE SODIUM. [Suspect]
     Active Substance: METHOTREXATE SODIUM
     Indication: RHEUMATOID ARTHRITIS
     Dosage: UNK

REACTIONS (13)
  - Memory impairment [Recovering/Resolving]
  - Productive cough [Unknown]
  - Insomnia [Unknown]
  - Dizziness [Recovering/Resolving]
  - Infection [Unknown]
  - Candida infection [Unknown]
  - Loss of consciousness [Recovering/Resolving]
  - Drug ineffective [Unknown]
  - Malaise [Unknown]
  - Balance disorder [Recovering/Resolving]
  - Nausea [Recovering/Resolving]
  - Hypoacusis [Unknown]
  - Intentional dose omission [Unknown]

NARRATIVE: CASE EVENT DATE: 201803
